FAERS Safety Report 6259086-4 (Version None)
Quarter: 2009Q3

REPORT INFORMATION
  Report Type: 
  Country: None (occurrence: None)
  Receive Date: 20090707
  Receipt Date: 20090605
  Transmission Date: 20100115
  Serious: Yes (Other)
  Sender: FDA-Public Use
  Company Number: US-BAYER-200920265NA

PATIENT
  Age: 47 Year
  Sex: Female
  Weight: 45 kg

DRUGS (36)
  1. MAGNEVIST [Suspect]
     Indication: NUCLEAR MAGNETIC RESONANCE IMAGING
     Dosage: TOTAL DAILY DOSE: 15 ML
     Route: 042
     Dates: start: 20050823, end: 20050823
  2. MAGNEVIST [Suspect]
     Dosage: TOTAL DAILY DOSE: 15 ML
     Route: 042
     Dates: start: 20050907, end: 20050907
  3. MAGNEVIST [Suspect]
     Dosage: TOTAL DAILY DOSE: 15 ML
     Route: 042
     Dates: start: 20050915, end: 20050915
  4. MAGNEVIST [Suspect]
     Dosage: TOTAL DAILY DOSE: 15 ML
     Route: 042
     Dates: start: 20051024, end: 20051024
  5. MAGNEVIST [Suspect]
     Dosage: TOTAL DAILY DOSE: 15 ML
     Route: 042
     Dates: start: 20051128, end: 20051128
  6. ZYRTEC [Concomitant]
  7. FOLIC ACID [Concomitant]
  8. NEXIUM [Concomitant]
  9. MIODRINE [Concomitant]
     Indication: HYPOTENSION
  10. ZOFRAN [Concomitant]
     Indication: NAUSEA
  11. EPOGEN [Concomitant]
  12. OXYCONTIN [Concomitant]
  13. NEURONTIN [Concomitant]
  14. CELEBREX [Concomitant]
  15. RENAGEL [Concomitant]
     Dosage: AFTER MEALS
  16. CALCIUM [Concomitant]
  17. IRON [Concomitant]
  18. DILAUDID [Concomitant]
  19. FENTANYL [Concomitant]
  20. VALIUM [Concomitant]
  21. REFFLECIT [Concomitant]
  22. PERCOCET [Concomitant]
  23. FOSAMAX [Concomitant]
  24. VITAMIN D [Concomitant]
  25. NAPROXEN [Concomitant]
  26. PROTONIX [Concomitant]
  27. METHADONE [Concomitant]
  28. NALOXONE [Concomitant]
  29. CARNITOR [Concomitant]
  30. MIDAZOLAM HCL [Concomitant]
  31. RETIN-A TOPICAL [Concomitant]
  32. KAYEXALATE [Concomitant]
  33. AVELOX [Concomitant]
  34. HEPARIN DIALYSIS [Concomitant]
  35. NYSTATIN [Concomitant]
  36. FLUDROCORTISONES ACETATE [Concomitant]

REACTIONS (9)
  - DRY SKIN [None]
  - JOINT CONTRACTURE [None]
  - NEPHROGENIC SYSTEMIC FIBROSIS [None]
  - PAIN IN EXTREMITY [None]
  - SCAB [None]
  - SKIN DISORDER [None]
  - SKIN EXFOLIATION [None]
  - SKIN INDURATION [None]
  - SKIN TIGHTNESS [None]
